FAERS Safety Report 7425357 (Version 2)
Quarter: 2019Q3

REPORT INFORMATION
  Report Type: Report from Study
  Country: US (occurrence: US)
  Receive Date: 20100618
  Receipt Date: 20190916
  Transmission Date: 20191005
  Serious: Yes (Hospitalization)
  Sender: FDA-Public Use
  Company Number: PHHO2010US06799

PATIENT
  Age: 56 Year
  Sex: Female
  Weight: 91.6 kg

DRUGS (11)
  1. MEGACE [Concomitant]
     Active Substance: MEGESTROL ACETATE
     Indication: PRODUCT USED FOR UNKNOWN INDICATION
     Route: 065
  2. AFINITOR [Suspect]
     Active Substance: EVEROLIMUS
     Indication: NEOPLASM
     Dosage: 10 MG, QD
     Route: 048
     Dates: start: 20100413
  3. AVASTIN [Suspect]
     Active Substance: BEVACIZUMAB
     Indication: NEOPLASM
     Dosage: 10 MG/KG
     Route: 042
     Dates: start: 20100413
  4. VALSARTAN AND HYDROCHLOROTHIAZIDE [Concomitant]
     Active Substance: HYDROCHLOROTHIAZIDE\VALSARTAN
     Indication: PRODUCT USED FOR UNKNOWN INDICATION
     Route: 065
  5. MS CONTIN [Concomitant]
     Active Substance: MORPHINE SULFATE
     Indication: PRODUCT USED FOR UNKNOWN INDICATION
     Route: 065
  6. CODIOVAN [Concomitant]
     Active Substance: HYDROCHLOROTHIAZIDE\VALSARTAN
     Indication: PRODUCT USED FOR UNKNOWN INDICATION
     Route: 065
  7. KYTRIL [Concomitant]
     Active Substance: GRANISETRON HYDROCHLORIDE
     Indication: PRODUCT USED FOR UNKNOWN INDICATION
     Route: 065
  8. PROTONIX [Concomitant]
     Active Substance: PANTOPRAZOLE SODIUM
     Indication: PRODUCT USED FOR UNKNOWN INDICATION
     Route: 065
  9. FARYDAK [Suspect]
     Active Substance: PANOBINOSTAT
     Indication: NEOPLASM
     Dosage: 10 MG
     Route: 048
     Dates: start: 20100413
  10. MIRALAX [Concomitant]
     Active Substance: POLYETHYLENE GLYCOL 3350
     Indication: PRODUCT USED FOR UNKNOWN INDICATION
     Route: 065
  11. ATIVAN [Concomitant]
     Active Substance: LORAZEPAM
     Indication: PRODUCT USED FOR UNKNOWN INDICATION
     Route: 065

REACTIONS (13)
  - Tachycardia [Unknown]
  - Ulcer [Unknown]
  - Abdominal pain upper [Unknown]
  - Hypovolaemia [Unknown]
  - Urinary tract infection [Unknown]
  - Chest discomfort [Unknown]
  - Chest pain [Unknown]
  - Constipation [Unknown]
  - Vomiting [Unknown]
  - Abdominal pain [Unknown]
  - Oesophagitis [Unknown]
  - Hyponatraemia [Unknown]
  - Nausea [Unknown]

NARRATIVE: CASE EVENT DATE: 20100426
